APPROVED DRUG PRODUCT: MORPHINE SULFATE
Active Ingredient: MORPHINE SULFATE
Strength: 15MG
Dosage Form/Route: TABLET, EXTENDED RELEASE;ORAL
Application: A091357 | Product #001
Applicant: EPIC PHARMA LLC
Approved: Jun 23, 2016 | RLD: No | RS: No | Type: DISCN